FAERS Safety Report 16275735 (Version 2)
Quarter: 2019Q2

REPORT INFORMATION
  Report Type: Spontaneous
  Country: US (occurrence: US)
  Receive Date: 20190504
  Receipt Date: 20190505
  Transmission Date: 20190711
  Serious: Yes (Death, Other)
  Sender: FDA-Public Use
  Company Number: PHEH2019US018727

PATIENT
  Sex: Female

DRUGS (1)
  1. KYMRIAH [Suspect]
     Active Substance: TISAGENLECLEUCEL
     Indication: LEUKAEMIA
     Dosage: 00.00 MG/KG, ONCE/SINGLE
     Route: 042
     Dates: start: 20190318, end: 20190318

REACTIONS (4)
  - Blast cell count increased [Unknown]
  - Treatment failure [Unknown]
  - Leukaemia recurrent [Fatal]
  - Malignant neoplasm progression [Fatal]
